FAERS Safety Report 10044510 (Version 2)
Quarter: 2014Q2

REPORT INFORMATION
  Report Type: Spontaneous
  Country: US (occurrence: US)
  Receive Date: 20140328
  Receipt Date: 20140515
  Transmission Date: 20141212
  Serious: No
  Sender: FDA-Public Use
  Company Number: US-PFIZER INC-2014086131

PATIENT
  Sex: Male

DRUGS (1)
  1. ADVIL PM [Suspect]
     Dosage: UNK

REACTIONS (1)
  - Drug ineffective [Unknown]
